FAERS Safety Report 15696424 (Version 1)
Quarter: 2018Q4

REPORT INFORMATION
  Report Type: Other
  Country: US (occurrence: US)
  Receive Date: 20181206
  Receipt Date: 20181206
  Transmission Date: 20190205
  Serious: Yes (Death, Life-Threatening, Hospitalization)
  Sender: FDA-Public Use
  Company Number: US-HLSUS-2018-US-001013

PATIENT
  Age: 87 Year
  Sex: Female
  Weight: 93.6 kg

DRUGS (1)
  1. CLOZARIL [Suspect]
     Active Substance: CLOZAPINE
     Indication: BIPOLAR DISORDER
     Route: 048
     Dates: start: 20151015, end: 20151111

REACTIONS (4)
  - Pneumonia aspiration [None]
  - Hypernatraemia [None]
  - Dysphagia [None]
  - Parkinson^s disease [Fatal]

NARRATIVE: CASE EVENT DATE: 20151021
